FAERS Safety Report 8297563-5 (Version None)
Quarter: 2012Q2

REPORT INFORMATION
  Report Type: 
  Country: None (occurrence: None)
  Receive Date: 20120419
  Receipt Date: 20120413
  Transmission Date: 20120825
  Serious: Yes (Other)
  Sender: FDA-Public Use
  Company Number: PHHY2012ES032616

PATIENT
  Age: 62 Year
  Sex: Female

DRUGS (1)
  1. ZOMETA [Suspect]
     Indication: BREAST CANCER
     Dosage: 4 MG, QMO
     Route: 042
     Dates: start: 20050101, end: 20070101

REACTIONS (6)
  - OSTEONECROSIS OF JAW [None]
  - PAIN IN JAW [None]
  - EXPOSED BONE IN JAW [None]
  - POST PROCEDURAL INFECTION [None]
  - PRIMARY SEQUESTRUM [None]
  - GINGIVAL SWELLING [None]
